FAERS Safety Report 8048693-4 (Version None)
Quarter: 2012Q1

REPORT INFORMATION
  Report Type: 
  Country: None (occurrence: None)
  Receive Date: 20120117
  Receipt Date: 20120111
  Transmission Date: 20120608
  Serious: Yes (Hospitalization, Other)
  Sender: FDA-Public Use
  Company Number: US-JNJFOC-20120104171

PATIENT
  Age: 56 Year
  Sex: Male
  Weight: 77.11 kg

DRUGS (2)
  1. SODIUM FLUORIDE F 18 [Suspect]
     Indication: SLEEP DISORDER THERAPY
     Dosage: 2-3 BOTTLES DAILY
     Route: 048
  2. SODIUM FLUORIDE F 18 [Suspect]
     Indication: POISONING
     Dosage: 2-3 BOTTLES DAILY
     Route: 048

REACTIONS (2)
  - INTENTIONAL DRUG MISUSE [None]
  - INCORRECT ROUTE OF DRUG ADMINISTRATION [None]
